FAERS Safety Report 6804042-8 (Version None)
Quarter: 2010Q2

REPORT INFORMATION
  Report Type: 
  Country: None (occurrence: None)
  Receive Date: 20100628
  Receipt Date: 20061011
  Transmission Date: 20101027
  Serious: No
  Sender: FDA-Public Use
  Company Number: US-PFIZER INC-2006101822

PATIENT
  Sex: Female
  Weight: 90.72 kg

DRUGS (3)
  1. SYNAREL [Suspect]
     Indication: ENDOMETRIOSIS
     Dosage: TWICE DAILY
     Route: 045
  2. SYNAREL [Suspect]
     Indication: CYST
  3. DRUG, UNSPECIFIED [Concomitant]
     Route: 065

REACTIONS (1)
  - MENOMETRORRHAGIA [None]
